FAERS Safety Report 4307280-1 (Version None)
Quarter: 2004Q1

REPORT INFORMATION
  Report Type: 
  Country: None (occurrence: None)
  Receive Date: 20040227
  Receipt Date: 20030411
  Transmission Date: 20041129
  Serious: Yes (Hospitalization, Disabling, Other)
  Sender: FDA-Public Use
  Company Number: WAES 0304USA01356

PATIENT
  Age: 41 Year
  Weight: 86 kg

DRUGS (5)
  1. TYLENOL (CAPLET) [Concomitant]
  2. COUGH, COLD, AND FLU THERAPIES (UNSPECIFIED) [Concomitant]
  3. CLARITIN [Concomitant]
  4. VIOXX [Suspect]
     Indication: ARTHRITIS
     Route: 048
     Dates: start: 20000601
  5. VIOXX [Suspect]
     Indication: BURSITIS
     Route: 048
     Dates: start: 20000601

REACTIONS (4)
  - HEPATITIS B [None]
  - HIV INFECTION [None]
  - MYOCARDIAL INFARCTION [None]
  - PANIC ATTACK [None]
